FAERS Safety Report 4357017-5 (Version None)
Quarter: 2004Q2

REPORT INFORMATION
  Report Type: 
  Country: None (occurrence: None)
  Receive Date: 20040507
  Receipt Date: 20040422
  Transmission Date: 20050107
  Serious: Yes (Other)
  Sender: FDA-Public Use
  Company Number: S04-USA-02245-01

PATIENT
  Age: 64 Year
  Sex: Female

DRUGS (6)
  1. THYROID TAB [Suspect]
     Indication: THYROIDECTOMY
     Dosage: 1.75 GRAIN QD PO
     Route: 048
  2. THYROID TAB [Suspect]
     Indication: THYROIDECTOMY
     Dates: start: 19960101
  3. METHYLPREDNISOLONE [Suspect]
     Dates: start: 20040101
  4. CHOLESTYRAMINE [Concomitant]
  5. NORVASC [Concomitant]
  6. PROTONIX [Concomitant]

REACTIONS (6)
  - ANGINA PECTORIS [None]
  - BLOOD THYROID STIMULATING HORMONE DECREASED [None]
  - CARDIAC VALVE DISEASE [None]
  - DILATATION ATRIAL [None]
  - THYROXINE FREE DECREASED [None]
  - UNEVALUABLE EVENT [None]
